FAERS Safety Report 10086894 (Version 2)
Quarter: 2014Q2

REPORT INFORMATION
  Report Type: Spontaneous
  Country: IT (occurrence: IT)
  Receive Date: 20140418
  Receipt Date: 20140425
  Transmission Date: 20141212
  Serious: Yes (Other)
  Sender: FDA-Public Use
  Company Number: IT-UCBSA-117990

PATIENT
  Age: 38 Year
  Sex: Female

DRUGS (2)
  1. VIMPAT [Suspect]
     Indication: EPILEPSY
     Dosage: 50 MG TABLETS
     Route: 048
     Dates: start: 201312, end: 20140215
  2. RIVOTRIL [Concomitant]
     Indication: INSOMNIA
     Dosage: 5 DROPS PER DAY
     Route: 048
     Dates: start: 2010

REACTIONS (4)
  - Paraesthesia [Recovered/Resolved]
  - Insomnia [Recovered/Resolved]
  - Convulsion [Recovered/Resolved]
  - Drug ineffective [Recovered/Resolved]
